FAERS Safety Report 9684801 (Version 1)
Quarter: 2013Q4

REPORT INFORMATION
  Report Type: Report from Study
  Country: AR (occurrence: AR)
  Receive Date: 20131112
  Receipt Date: 20131112
  Transmission Date: 20140711
  Serious: Yes (Hospitalization, Disabling, Other)
  Sender: FDA-Public Use
  Company Number: PHHY2013AR128732

PATIENT
  Sex: Male

DRUGS (1)
  1. DIOVAN [Suspect]
     Indication: HYPERTENSION
     Dosage: 1 DF(320MG), DAILY
     Route: 048

REACTIONS (8)
  - Bone cancer [Recovering/Resolving]
  - Intervertebral disc protrusion [Recovered/Resolved]
  - Paraplegia [Unknown]
  - Fall [Unknown]
  - Blood disorder [Recovering/Resolving]
  - Thrombosis [Unknown]
  - Movement disorder [Unknown]
  - Overweight [Unknown]
